FAERS Safety Report 10476575 (Version 3)
Quarter: 2015Q2

REPORT INFORMATION
  Report Type: Report from Study
  Country: US (occurrence: US)
  Receive Date: 20140925
  Receipt Date: 20150604
  Transmission Date: 20150821
  Serious: Yes (Other)
  Sender: FDA-Public Use
  Company Number: US-ALEXION PHARMACEUTICALS INC-A201305749

PATIENT

DRUGS (11)
  1. PROTONIX [Concomitant]
     Active Substance: PANTOPRAZOLE SODIUM
     Indication: PRODUCT USED FOR UNKNOWN INDICATION
     Dosage: 40 MG, QD
     Route: 048
  2. CORGARD [Concomitant]
     Active Substance: NADOLOL
     Indication: PRODUCT USED FOR UNKNOWN INDICATION
     Dosage: 20 MG, QD
     Route: 048
  3. COUMADIN [Concomitant]
     Active Substance: WARFARIN SODIUM
     Indication: PRODUCT USED FOR UNKNOWN INDICATION
     Dosage: 10 MG, QD  SUNDAY TO FRIDAY
     Route: 048
  4. SOLIRIS [Suspect]
     Active Substance: ECULIZUMAB
     Dosage: 1200 MG, Q2W
     Route: 042
     Dates: start: 20140121, end: 20140902
  5. VALTREX [Concomitant]
     Active Substance: VALACYCLOVIR HYDROCHLORIDE
     Indication: PRODUCT USED FOR UNKNOWN INDICATION
     Dosage: 1 G, PRN
     Route: 048
  6. FOLIC ACID. [Concomitant]
     Active Substance: FOLIC ACID
     Indication: PRODUCT USED FOR UNKNOWN INDICATION
     Dosage: 1 MG, QD
     Route: 048
  7. SOLIRIS [Suspect]
     Active Substance: ECULIZUMAB
     Indication: PAROXYSMAL NOCTURNAL HAEMOGLOBINURIA
     Dosage: 600 MG, QW
     Route: 042
     Dates: start: 20130528, end: 20130618
  8. SOLIRIS [Suspect]
     Active Substance: ECULIZUMAB
     Dosage: 1300 MG, Q2W
     Route: 042
     Dates: start: 20140916
  9. POTASSIUM CHLORIDE. [Concomitant]
     Active Substance: POTASSIUM CHLORIDE
     Indication: PRODUCT USED FOR UNKNOWN INDICATION
     Dosage: 1 DF, QD
     Route: 048
  10. SOLIRIS [Suspect]
     Active Substance: ECULIZUMAB
     Dosage: 900 MG, Q2W
     Route: 042
     Dates: start: 20130625, end: 20140107
  11. COUMADIN [Concomitant]
     Active Substance: WARFARIN SODIUM
     Dosage: 7.5 MG, QW  SATURDAY
     Route: 048

REACTIONS (7)
  - Fatigue [Unknown]
  - Headache [Unknown]
  - Platelet count decreased [Unknown]
  - Pancytopenia [Unknown]
  - Transfusion [Unknown]
  - Incorrect dose administered [Not Recovered/Not Resolved]
  - Haemoglobin decreased [Unknown]

NARRATIVE: CASE EVENT DATE: 20140121
